FAERS Safety Report 5213689-4 (Version None)
Quarter: 2007Q1

REPORT INFORMATION
  Report Type: 
  Country: None (occurrence: None)
  Receive Date: 20070119
  Receipt Date: 20070109
  Transmission Date: 20070707
  Serious: Yes (Life-Threatening)
  Sender: FDA-Public Use
  Company Number: FR-PFIZER INC-2007003396

PATIENT
  Age: 81 Year
  Sex: Female

DRUGS (6)
  1. SULFASALAZINE [Suspect]
     Indication: POLYARTHRITIS
     Route: 048
     Dates: start: 20060808, end: 20060904
  2. TRAMADOL HCL [Concomitant]
     Indication: ARTHRALGIA
     Route: 048
     Dates: start: 20060828, end: 20060829
  3. ACETAMINOPHEN W/ PROPOXYPHENE HCL [Concomitant]
     Indication: ARTHRALGIA
     Route: 048
     Dates: start: 20060830, end: 20060910
  4. OMEPRAZOLE [Concomitant]
     Route: 048
     Dates: start: 20060829, end: 20060910
  5. RENITEC [Concomitant]
     Route: 048
     Dates: start: 20060615, end: 20060904
  6. LASIX [Concomitant]
     Route: 048
     Dates: start: 20060615, end: 20060904

REACTIONS (3)
  - AGRANULOCYTOSIS [None]
  - ASTHENIA [None]
  - VOMITING [None]
